FAERS Safety Report 8962795 (Version 2)
Quarter: 2014Q2

REPORT INFORMATION
  Report Type: Report from Study
  Country: BE (occurrence: BE)
  Receive Date: 20121213
  Receipt Date: 20131018
  Transmission Date: 20141212
  Serious: Yes (Hospitalization)
  Sender: FDA-Public Use
  Company Number: BE-PFIZER INC-2012310939

PATIENT
  Age: 55 Year
  Sex: Male
  Weight: 65.5 kg

DRUGS (13)
  1. METHYLPREDNISOLONE SODIUM SUCCINATE [Suspect]
     Indication: PROPHYLAXIS AGAINST TRANSPLANT REJECTION
     Dosage: 165 MG, 1X/DAY
     Route: 042
     Dates: start: 20040112
  2. METHYLPREDNISOLONE SODIUM SUCCINATE [Suspect]
     Dosage: 40 MG, 1X/DAY
     Route: 042
     Dates: start: 20041015
  3. METHYLPREDNISOLONE [Suspect]
     Indication: PROPHYLAXIS AGAINST TRANSPLANT REJECTION
     Dosage: 80 MG, 1X/DAY
     Route: 048
     Dates: start: 20040116
  4. METHYLPREDNISOLONE [Suspect]
     Dosage: 6 MG, 1X/DAY
     Route: 048
     Dates: start: 20041017
  5. MYCOPHENOLATE MOFETIL [Suspect]
     Indication: PROPHYLAXIS AGAINST TRANSPLANT REJECTION
     Dosage: 1000 MG, 1X/DAY
     Route: 048
     Dates: start: 20041015
  6. MYCOPHENOLATE MOFETIL [Suspect]
     Dosage: 1000 MG, 2X/DAY
     Route: 048
     Dates: start: 20041016
  7. CYCLOSPORINE [Suspect]
     Indication: PROPHYLAXIS AGAINST TRANSPLANT REJECTION
     Dosage: 275 MG, 1X/DAY
     Route: 048
     Dates: start: 20041015
  8. CYCLOSPORINE [Suspect]
     Dosage: 150 MG, 2X/DAY
     Route: 048
     Dates: start: 20041104
  9. AMLOR [Concomitant]
     Route: 048
  10. ZESTRIL [Concomitant]
     Dosage: 5 MG, 1X/DAY
     Route: 048
     Dates: start: 20041103
  11. CEFAZOLIN [Concomitant]
     Dosage: 2 G, 3X/DAY
     Route: 042
     Dates: start: 20041015, end: 20041016
  12. METOPROLOL [Concomitant]
     Dosage: 50 MG, 1X/DAY
     Route: 048
     Dates: start: 20041018, end: 20041021
  13. TERAZOSIN [Concomitant]
     Dosage: 2 MG, 1X/DAY
     Route: 048
     Dates: start: 20041020, end: 20041030

REACTIONS (1)
  - Pyrexia [Recovered/Resolved]
